FAERS Safety Report 21967351 (Version 1)
Quarter: 2023Q1

REPORT INFORMATION
  Report Type: Report from Study
  Country: ES (occurrence: ES)
  Receive Date: 20230208
  Receipt Date: 20230208
  Transmission Date: 20230417
  Serious: Yes (Hospitalization, Other)
  Sender: FDA-Public Use
  Company Number: ES-ASTELLAS-2023US003826

PATIENT
  Sex: Male

DRUGS (3)
  1. TACROLIMUS [Suspect]
     Active Substance: TACROLIMUS
     Indication: Renal transplant
     Dosage: 0.4 MG/KG, UNKNOWN FREQ.
     Route: 065
  2. PREDNISONE [Suspect]
     Active Substance: PREDNISONE
     Indication: Renal transplant
     Route: 065
  3. EVEROLIMUS [Suspect]
     Active Substance: EVEROLIMUS
     Indication: Renal transplant
     Dosage: UNK UNK, UNKNOWN FREQ. (2?3 NG/ML)
     Route: 065

REACTIONS (5)
  - Hypoxia [Unknown]
  - Pulmonary hypertension [Unknown]
  - Respiratory disorder [Unknown]
  - Neutropenia [Unknown]
  - Bronchiolitis [Unknown]
